FAERS Safety Report 14137260 (Version 1)
Quarter: 2017Q4

REPORT INFORMATION
  Report Type: Spontaneous
  Country: US (occurrence: US)
  Receive Date: 20171027
  Receipt Date: 20171027
  Transmission Date: 20180321
  Serious: Yes (Disabling, Other)
  Sender: FDA-Public Use
  Company Number: US-SA-2017SA207519

PATIENT
  Sex: Female

DRUGS (6)
  1. TOUJEO [Suspect]
     Active Substance: INSULIN GLARGINE
     Dosage: DOSE:40 UNIT(S)
     Route: 051
     Dates: start: 2017, end: 201710
  2. SOLOSTAR [Suspect]
     Active Substance: DEVICE
     Dates: start: 2017, end: 201710
  3. METFORMIN [Concomitant]
     Active Substance: METFORMIN HYDROCHLORIDE
  4. GLIPIZIDE. [Concomitant]
     Active Substance: GLIPIZIDE
  5. TOUJEO [Suspect]
     Active Substance: INSULIN GLARGINE
     Dosage: DOSE:40 UNIT(S)
     Route: 051
     Dates: start: 201710
  6. SOLOSTAR [Suspect]
     Active Substance: DEVICE
     Dates: start: 201710

REACTIONS (5)
  - Product use issue [Unknown]
  - Glycosylated haemoglobin increased [Recovering/Resolving]
  - Gait disturbance [Unknown]
  - Cataract [Unknown]
  - Cerebrovascular accident [Unknown]

NARRATIVE: CASE EVENT DATE: 2017
